FAERS Safety Report 6656708-0 (Version None)
Quarter: 2010Q1

REPORT INFORMATION
  Report Type: 
  Country: None (occurrence: None)
  Receive Date: 20100324
  Receipt Date: 20100309
  Transmission Date: 20100710
  Serious: Yes (Disabling)
  Sender: FDA-Public Use
  Company Number: 2010AL001438

PATIENT
  Sex: Male

DRUGS (1)
  1. METOCLOPRAMIDE TABLETS USP, [Suspect]
     Indication: GASTROOESOPHAGEAL REFLUX DISEASE
     Dosage: 40 MG; QD; PO
     Route: 048
     Dates: start: 20030901, end: 20090401

REACTIONS (12)
  - ACTIVITIES OF DAILY LIVING IMPAIRED [None]
  - DEFORMITY [None]
  - DYSPHAGIA [None]
  - ECONOMIC PROBLEM [None]
  - EXTRAPYRAMIDAL DISORDER [None]
  - HYPOPHAGIA [None]
  - MENTAL DISORDER [None]
  - MULTIPLE INJURIES [None]
  - NERVOUS SYSTEM DISORDER [None]
  - PAIN [None]
  - SPEECH DISORDER [None]
  - TARDIVE DYSKINESIA [None]
